FAERS Safety Report 19653283 (Version 2)
Quarter: 2021Q3

REPORT INFORMATION
  Report Type: Report from Study
  Country: US (occurrence: US)
  Receive Date: 20210803
  Receipt Date: 20210916
  Transmission Date: 20211014
  Serious: Yes (Hospitalization)
  Sender: FDA-Public Use
  Company Number: US-AMGEN-USACT2021115544

PATIENT
  Age: 57 Year
  Sex: Male
  Weight: 103.8 kg

DRUGS (5)
  1. ATIVAN [Concomitant]
     Active Substance: LORAZEPAM
     Dosage: 1 MILLIGRAM
     Route: 048
     Dates: start: 20201208
  2. AMG 510 [Suspect]
     Active Substance: AMG-510
     Indication: COLORECTAL CANCER STAGE IV
     Dosage: 960 MILLIGRAM
     Route: 048
     Dates: start: 20210714
  3. AMG 510 [Suspect]
     Active Substance: AMG-510
     Indication: K-RAS GENE MUTATION
  4. RMC?4630. [Suspect]
     Active Substance: RMC-4630
     Indication: COLORECTAL CANCER STAGE IV
     Dosage: 200 MILLIGRAM
     Route: 048
     Dates: start: 20210714
  5. RMC?4630. [Suspect]
     Active Substance: RMC-4630
     Indication: K-RAS GENE MUTATION

REACTIONS (1)
  - Hypoaesthesia [Not Recovered/Not Resolved]

NARRATIVE: CASE EVENT DATE: 20210717
